FAERS Safety Report 5955991-4 (Version None)
Quarter: 2008Q4

REPORT INFORMATION
  Report Type: 
  Country: None (occurrence: None)
  Receive Date: 20081112
  Receipt Date: 20081028
  Transmission Date: 20090506
  Serious: Yes (Hospitalization)
  Sender: FDA-Public Use
  Company Number: SPV1-2008-01577

PATIENT
  Age: 11 Year
  Sex: Male
  Weight: 30.8 kg

DRUGS (6)
  1. PENTASA [Suspect]
     Indication: AUTISM
     Dosage: DF, ORAL
     Route: 048
     Dates: start: 20070601
  2. PENTASA [Suspect]
     Indication: ILEITIS
     Dosage: DF, ORAL
     Route: 048
     Dates: start: 20070601
  3. ZOLOFT /01011402/ (SERTRALINE HYDROCHLORIDE) [Concomitant]
  4. DIFLUCAN [Concomitant]
  5. PROBIOTICS (BACTERIA NOS) [Concomitant]
  6. VITAMIN C /00008001/ (ASCORBIC ACID) [Concomitant]

REACTIONS (3)
  - DRUG EFFECT DECREASED [None]
  - ENCEPHALITIS VIRAL [None]
  - OFF LABEL USE [None]
